FAERS Safety Report 4949609-7 (Version None)
Quarter: 2006Q1

REPORT INFORMATION
  Report Type: 
  Country: None (occurrence: None)
  Receive Date: 20060321
  Receipt Date: 20060103
  Transmission Date: 20060701
  Serious: Yes (Hospitalization)
  Sender: FDA-Public Use
  Company Number: US-BOEHRINGER INGELHEIM PHARMACEUTICALS, INC.-2006-BP-00029BP

PATIENT
  Age: 14 Year
  Sex: Female
  Weight: 78 kg

DRUGS (5)
  1. CATAPRES-TTS-1 [Suspect]
     Route: 062
     Dates: start: 20051004
  2. CATAPRES-TTS-1 [Suspect]
     Route: 062
     Dates: start: 20051211, end: 20060103
  3. NEURONTIN [Concomitant]
  4. KEPPRA [Concomitant]
  5. ATIVAN [Concomitant]

REACTIONS (7)
  - BLOOD PRESSURE DECREASED [None]
  - BRADYCARDIA [None]
  - DEPRESSED LEVEL OF CONSCIOUSNESS [None]
  - LETHARGY [None]
  - MEDICATION ERROR [None]
  - PALLOR [None]
  - SOMNOLENCE [None]
